FAERS Safety Report 23774120 (Version 1)
Quarter: 2024Q2

REPORT INFORMATION
  Report Type: Spontaneous
  Country: CA (occurrence: CA)
  Receive Date: 20240423
  Receipt Date: 20240423
  Transmission Date: 20240716
  Serious: Yes (Other)
  Sender: FDA-Public Use
  Company Number: CA-TEVA-VS-3187085

PATIENT
  Age: 54 Year
  Sex: Female

DRUGS (2)
  1. METHOTREXATE [Suspect]
     Active Substance: METHOTREXATE
     Indication: Sarcoidosis
     Route: 065
  2. METHOTREXATE [Suspect]
     Active Substance: METHOTREXATE
     Indication: Sarcoidosis
     Dosage: DURATION: 365, UNIT UNKNOWN
     Route: 065

REACTIONS (7)
  - Cholecystectomy [Unknown]
  - Drug ineffective for unapproved indication [Unknown]
  - Flank pain [Unknown]
  - Granuloma [Unknown]
  - Off label use [Unknown]
  - Skin lesion [Unknown]
  - Uveitis [Unknown]
